FAERS Safety Report 21148619 (Version 2)
Quarter: 2022Q3

REPORT INFORMATION
  Report Type: Spontaneous
  Country: US (occurrence: US)
  Receive Date: 20220729
  Receipt Date: 20220901
  Transmission Date: 20221027
  Serious: Yes (Hospitalization)
  Sender: FDA-Public Use
  Company Number: US-BRISTOL-MYERS SQUIBB COMPANY-2022-081921

PATIENT
  Age: 71 Year
  Sex: Female
  Weight: 42.1 kg

DRUGS (1)
  1. REVLIMID [Suspect]
     Active Substance: LENALIDOMIDE
     Indication: Plasma cell myeloma
     Dosage: 3 WEEKS OFF AND 1 WEEK OFF, DAILY FOR 21 DAYS
     Route: 048
     Dates: start: 20220701

REACTIONS (1)
  - Pyrexia [Unknown]
